FAERS Safety Report 5588508-7 (Version None)
Quarter: 2008Q1

REPORT INFORMATION
  Report Type: 
  Country: None (occurrence: None)
  Receive Date: 20080111
  Receipt Date: 20071231
  Transmission Date: 20080703
  Serious: Yes (Death, Other)
  Sender: FDA-Public Use
  Company Number: US-ROCHE-540524

PATIENT

DRUGS (3)
  1. CAPECITABINE [Suspect]
     Indication: GASTRIC CANCER
     Dosage: THERAPY GIVEN ON DAYS 1-14 OF 21-DAY CYCLES.
     Route: 048
  2. ENZASTAURIN [Suspect]
     Indication: GASTRIC CANCER
     Route: 048
  3. ENZASTAURIN [Suspect]
     Dosage: THERAPY ADMINISTERED CONTINUOUSLY IN 21-DAY CYCLES.
     Route: 048

REACTIONS (5)
  - ABDOMINAL PAIN [None]
  - DIARRHOEA [None]
  - FATIGUE [None]
  - HYPOTENSION [None]
  - INTESTINAL PERFORATION [None]
